FAERS Safety Report 25761823 (Version 1)
Quarter: 2025Q3

REPORT INFORMATION
  Report Type: Spontaneous
  Country: US (occurrence: US)
  Receive Date: 20250904
  Receipt Date: 20250904
  Transmission Date: 20251021
  Serious: No
  Sender: PFIZER
  Company Number: US-PFIZER INC-202500175392

PATIENT
  Age: 46 Year
  Sex: Female

DRUGS (1)
  1. IBRANCE [Suspect]
     Active Substance: PALBOCICLIB
     Dates: start: 20250211

REACTIONS (4)
  - Diarrhoea [Not Recovered/Not Resolved]
  - Stomatitis [Unknown]
  - White blood cell count decreased [Unknown]
  - Hypoaesthesia [Unknown]
